FAERS Safety Report 9715591 (Version 1)
Quarter: 2013Q4

REPORT INFORMATION
  Report Type: Spontaneous
  Country: US (occurrence: US)
  Receive Date: 20131127
  Receipt Date: 20131127
  Transmission Date: 20140711
  Serious: Yes (Other)
  Sender: FDA-Public Use
  Company Number: US-JNJFOC-20131110228

PATIENT
  Age: 31 Year
  Sex: Female
  Weight: 68.04 kg

DRUGS (1)
  1. LISTERINE WHITENING TOOTHPASTE [Suspect]
     Indication: DENTAL DISORDER PROPHYLAXIS
     Dosage: DIME OR LESS SIZE 1-3 TIMES A DAY
     Route: 048
     Dates: start: 20131109, end: 20131111

REACTIONS (3)
  - Oral mucosal exfoliation [Recovering/Resolving]
  - Oral discomfort [Recovering/Resolving]
  - Oral mucosal erythema [Recovering/Resolving]
